FAERS Safety Report 8992772 (Version 1)
Quarter: 2013Q1

REPORT INFORMATION
  Report Type: Spontaneous
  Country: SE (occurrence: SE)
  Receive Date: 20130102
  Receipt Date: 20130102
  Transmission Date: 20140127
  Serious: Yes (Death, Other)
  Sender: FDA-Public Use
  Company Number: SE-ROCHE-1175972

PATIENT
  Age: 90 Year
  Sex: Female

DRUGS (2)
  1. ACTILYSE [Suspect]
     Indication: CEREBROVASCULAR ACCIDENT
     Route: 042
     Dates: start: 20100525, end: 20100525
  2. PLAVIX [Concomitant]

REACTIONS (5)
  - Cerebral haemorrhage [Fatal]
  - Hypertension [Fatal]
  - Depressed level of consciousness [Fatal]
  - Nausea [Fatal]
  - Headache [Fatal]
